FAERS Safety Report 6687226-1 (Version None)
Quarter: 2010Q2

REPORT INFORMATION
  Report Type: 
  Country: None (occurrence: None)
  Receive Date: 20100419
  Receipt Date: 20090813
  Transmission Date: 20101027
  Serious: No
  Sender: FDA-Public Use
  Company Number: US-ABBOTT-09P-163-0592160-00

PATIENT
  Sex: Male

DRUGS (1)
  1. ZEMPLAR [Suspect]
     Indication: DRUG USE FOR UNKNOWN INDICATION

REACTIONS (3)
  - EXTRAVASATION [None]
  - INCORRECT DOSE ADMINISTERED [None]
  - INFUSION SITE PAIN [None]
